FAERS Safety Report 5250318-8 (Version None)
Quarter: 2007Q1

REPORT INFORMATION
  Report Type: 
  Country: None (occurrence: None)
  Receive Date: 20070228
  Receipt Date: 20060411
  Transmission Date: 20070707
  Serious: Yes (Other)
  Sender: FDA-Public Use
  Company Number: US-GLAXOSMITHKLINE-A0598972A

PATIENT
  Age: 57 Year
  Sex: Male
  Weight: 104.5 kg

DRUGS (4)
  1. LAMICTAL [Suspect]
     Indication: BIPOLAR DISORDER
     Dosage: 100MG PER DAY
     Route: 048
     Dates: start: 20060117, end: 20060303
  2. PROSCAR [Concomitant]
     Dosage: 5MG PER DAY
  3. FLOMAX [Concomitant]
  4. SAW PALMETTO [Concomitant]
     Dosage: .4MG PER DAY

REACTIONS (2)
  - LEUKOPENIA [None]
  - NEUTROPENIA [None]
